FAERS Safety Report 9399694 (Version 1)
Quarter: 2013Q3

REPORT INFORMATION
  Report Type: Spontaneous
  Country: US (occurrence: US)
  Receive Date: 20130715
  Receipt Date: 20130715
  Transmission Date: 20140515
  Serious: Yes (Other)
  Sender: FDA-Public Use
  Company Number: US-ROCHE-1246788

PATIENT
  Age: 35 Week
  Sex: Female
  Weight: .42 kg

DRUGS (1)
  1. BEVACIZUMAB [Suspect]
     Indication: RETINOPATHY OF PREMATURITY
     Dosage: 0.625 MG/0.025 ML
     Route: 050

REACTIONS (2)
  - Exudative retinopathy [Unknown]
  - Retinal detachment [Recovered/Resolved]
